FAERS Safety Report 8282988-4 (Version None)
Quarter: 2012Q2

REPORT INFORMATION
  Report Type: 
  Country: None (occurrence: None)
  Receive Date: 20120413
  Receipt Date: 20120405
  Transmission Date: 20120825
  Serious: Yes (Hospitalization, Other)
  Sender: FDA-Public Use
  Company Number: US-BAYER-2011-076263

PATIENT
  Age: 39 Year
  Sex: Female
  Weight: 45.351 kg

DRUGS (7)
  1. SINGULAIR [Concomitant]
     Dosage: UNK
     Dates: start: 20081201
  2. YAZ [Suspect]
     Indication: CONTRACEPTION
     Dosage: UNK
     Route: 048
     Dates: start: 20080101, end: 20091201
  3. DICLOFENAC POTASSIUM [Concomitant]
     Dosage: UNK
     Dates: start: 20100103
  4. ALLEGRA-D 12 HOUR [Concomitant]
     Dosage: UNK
     Dates: start: 20020101
  5. HYDROCODONE BITARTRATE AND ACETAMINOPHEN [Concomitant]
     Dosage: 5MG/500MG
     Dates: start: 20100103
  6. MOTRIN [Concomitant]
     Dosage: UNK
     Dates: start: 19980101
  7. SKELAXIN [Concomitant]
     Dosage: 800 MG, UNK
     Dates: start: 20100103

REACTIONS (8)
  - MYOCARDIAL INFARCTION [None]
  - CEREBROVASCULAR ACCIDENT [None]
  - GALLBLADDER DISORDER [None]
  - DEEP VEIN THROMBOSIS [None]
  - PAIN [None]
  - PULMONARY EMBOLISM [None]
  - MENTAL DISORDER [None]
  - FEAR [None]
